FAERS Safety Report 6416796-3 (Version None)
Quarter: 2009Q4

REPORT INFORMATION
  Report Type: 
  Country: None (occurrence: None)
  Receive Date: 20091027
  Receipt Date: 20091013
  Transmission Date: 20100525
  Serious: Yes (Hospitalization, Disabling)
  Sender: FDA-Public Use
  Company Number: AU-GENENTECH-283396

PATIENT
  Sex: Female
  Weight: 54 kg

DRUGS (21)
  1. MABTHERA [Suspect]
     Indication: DRUG USE FOR UNKNOWN INDICATION
     Dosage: UNK
     Dates: start: 20070401, end: 20070801
  2. ABT-263 [Suspect]
     Indication: CHRONIC LYMPHOCYTIC LEUKAEMIA
     Dosage: 125 MG, QD
     Route: 048
     Dates: start: 20080702, end: 20090206
  3. GI COCKTAIL (MYLANTA, VISCOUS LIDOCAINE) [Concomitant]
     Indication: CHEST PAIN
  4. BISOPROLOL [Concomitant]
     Indication: CARDIAC FAILURE
     Dosage: 5 MG, QD
     Dates: start: 20080920
  5. ENALAPRIL [Concomitant]
     Indication: HYPERTENSION
     Dosage: 20 MG, QD
     Dates: start: 20020101, end: 20080305
  6. ENALAPRIL [Concomitant]
     Dosage: 10 MG, QD
     Dates: start: 20080306
  7. ACETAMINOPHEN W/ CODEINE [Concomitant]
     Indication: CHEST PAIN
     Dosage: 500 MG, PRN
     Dates: start: 20081111
  8. PROCHLORPERAZINE [Concomitant]
     Indication: NAUSEA
     Dosage: 5 MG, TID
     Dates: start: 20080730
  9. LOPERAMIDE [Concomitant]
     Indication: DIARRHOEA
     Dosage: 2 MG, PRN
     Dates: start: 20080915
  10. OXYGEN [Concomitant]
     Indication: DYSPNOEA
     Dosage: 2 L/MIN, PRN
     Dates: start: 20080101
  11. ALLOPURINOL [Concomitant]
     Indication: PROPHYLAXIS
     Dosage: 300 MG, BID
     Dates: start: 20080101
  12. TEMAZEPAM [Concomitant]
     Indication: INSOMNIA
     Dosage: 10 MG, PRN
     Dates: start: 20081021
  13. LORAZEPAM [Concomitant]
     Indication: NAUSEA
     Dosage: 0.5 MG, BID
     Dates: start: 20080731
  14. RABEPRAZOLE SODIUM [Concomitant]
     Indication: GASTROOESOPHAGEAL REFLUX DISEASE
     Dosage: 20 MG, BID
     Dates: start: 20080101
  15. RABEPRAZOLE [Concomitant]
     Indication: INFECTION
     Dosage: 20 MG, QD
     Dates: start: 20081103
  16. DOMPERIDONE [Concomitant]
     Indication: NAUSEA
     Dosage: 10 MG, BID
     Dates: start: 20080820
  17. FUROSEMIDE [Concomitant]
     Indication: FLUID OVERLOAD
     Dosage: 20 MG, QD
     Dates: start: 20081121
  18. POTASSIUM CHLORIDE [Concomitant]
     Indication: HYPOKALAEMIA
     Dosage: 2 TABLET, QD
     Dates: start: 20081219, end: 20081223
  19. ANTIFUNGAL CREAM (UNK BRAND) [Concomitant]
     Indication: RASH
     Dosage: UNK
     Dates: start: 20090110, end: 20090201
  20. FLUDARABINE [Concomitant]
     Indication: DRUG USE FOR UNKNOWN INDICATION
     Dosage: UNK
     Dates: start: 20070401, end: 20070801
  21. CYCLOPHOSPHAMIDE [Concomitant]
     Indication: DRUG USE FOR UNKNOWN INDICATION
     Dosage: UNK
     Dates: start: 20070401, end: 20070801

REACTIONS (1)
  - PROGRESSIVE MULTIFOCAL LEUKOENCEPHALOPATHY [None]
